FAERS Safety Report 13726557 (Version 3)
Quarter: 2018Q1

REPORT INFORMATION
  Report Type: Spontaneous
  Country: US (occurrence: US)
  Receive Date: 20170707
  Receipt Date: 20180312
  Transmission Date: 20180508
  Serious: Yes (Hospitalization, Other)
  Sender: FDA-Public Use
  Company Number: US-PFIZER INC-2017291577

PATIENT
  Age: 74 Year
  Sex: Male

DRUGS (6)
  1. GABAPENTIN. [Suspect]
     Active Substance: GABAPENTIN
     Dosage: 2 DF, DAILY
  2. NORTHERA [Suspect]
     Active Substance: DROXIDOPA
     Indication: ORTHOSTATIC HYPOTENSION
     Dosage: UNK
     Route: 048
     Dates: start: 20170606
  3. NORTHERA [Suspect]
     Active Substance: DROXIDOPA
     Indication: SYNCOPE
  4. GABAPENTIN. [Suspect]
     Active Substance: GABAPENTIN
     Dosage: 4 DF, DAILY
     Dates: start: 20170621
  5. NORTHERA [Suspect]
     Active Substance: DROXIDOPA
     Indication: PARKINSON^S DISEASE
     Dosage: 1800 MG, DAILY
     Route: 048
     Dates: start: 20170606
  6. NORTHERA [Suspect]
     Active Substance: DROXIDOPA
     Indication: AUTONOMIC NEUROPATHY
     Dosage: UNK
     Route: 048
     Dates: start: 20170601, end: 201712

REACTIONS (12)
  - Bundle branch block [Unknown]
  - Exercise tolerance decreased [Unknown]
  - Therapeutic response decreased [Unknown]
  - Atrioventricular block first degree [Unknown]
  - Dizziness [Unknown]
  - Urinary tract infection [Unknown]
  - Respiratory failure [Unknown]
  - Loss of consciousness [Unknown]
  - Musculoskeletal pain [Unknown]
  - Loss of consciousness [Unknown]
  - Blood creatinine abnormal [Unknown]
  - Renal failure [Unknown]

NARRATIVE: CASE EVENT DATE: 20170622
